FAERS Safety Report 26134743 (Version 1)
Quarter: 2025Q4

REPORT INFORMATION
  Report Type: Spontaneous
  Country: EU (occurrence: EU)
  Receive Date: 20251209
  Receipt Date: 20251209
  Transmission Date: 20260118
  Serious: Yes (Hospitalization)
  Sender: ACCORD
  Company Number: None

PATIENT
  Age: 86 Year
  Sex: Male
  Weight: 71 kg

DRUGS (2)
  1. FLUOROURACIL [Suspect]
     Active Substance: FLUOROURACIL
     Indication: Adenocarcinoma of colon
     Dosage: 1ST CYCLE: 20/08/2025, 2ND CYCLE: 03/09/2025
     Dates: start: 20250820, end: 20250903
  2. ERBITUX [Suspect]
     Active Substance: CETUXIMAB
     Indication: Adenocarcinoma of colon
     Dosage: 1ST CYCLE: 05/08/2025, 3RD CYCLE 03/09/2025
     Dates: start: 20250805, end: 20250903

REACTIONS (2)
  - Bacteraemia [Recovered/Resolved]
  - Rash [Recovered/Resolved]

NARRATIVE: CASE EVENT DATE: 20250907
